FAERS Safety Report 20652397 (Version 1)
Quarter: 2022Q1

REPORT INFORMATION
  Report Type: Spontaneous
  Country: US (occurrence: US)
  Receive Date: 20220330
  Receipt Date: 20220330
  Transmission Date: 20220423
  Serious: No
  Sender: FDA-Public Use
  Company Number: US-BAYER-2022A046331

PATIENT
  Age: 28 Year
  Sex: Female

DRUGS (1)
  1. MIRENA [Suspect]
     Active Substance: LEVONORGESTREL
     Indication: Illness
     Dosage: 20?G/DAY
     Route: 015
     Dates: start: 20170614

REACTIONS (2)
  - Vaginal haemorrhage [None]
  - Dyspareunia [None]
